FAERS Safety Report 25261396 (Version 1)
Quarter: 2025Q2

REPORT INFORMATION
  Report Type: Spontaneous
  Country: GB (occurrence: GB)
  Receive Date: 20250501
  Receipt Date: 20250501
  Transmission Date: 20250717
  Serious: Yes (Disabling, Other)
  Sender: RANBAXY
  Company Number: GB-MHRA-TPP18504964C15936601YC1744890773394

PATIENT
  Age: 72 Year
  Sex: Female
  Weight: 78 kg

DRUGS (11)
  1. ATORVASTATIN [Suspect]
     Active Substance: ATORVASTATIN
     Indication: Blood cholesterol increased
     Dosage: TAKE ONE TABLET ONCE A DAY TO LOWER CHOLESTEROL...
     Route: 065
     Dates: start: 20250313, end: 20250410
  2. MELOXICAM [Concomitant]
     Active Substance: MELOXICAM
     Indication: Ill-defined disorder
     Route: 065
     Dates: start: 20240814, end: 20250218
  3. AMITRIPTYLINE [Concomitant]
     Active Substance: AMITRIPTYLINE
     Indication: Ill-defined disorder
     Route: 065
     Dates: start: 20240814
  4. CO-DYDRAMOL [Concomitant]
     Active Substance: ACETAMINOPHEN\DIHYDROCODEINE
     Indication: Ill-defined disorder
     Route: 065
     Dates: start: 20240814
  5. LACTULOSE [Concomitant]
     Active Substance: LACTULOSE
     Indication: Ill-defined disorder
     Route: 065
     Dates: start: 20240814
  6. LANSOPRAZOLE [Concomitant]
     Active Substance: LANSOPRAZOLE
     Indication: Ill-defined disorder
     Route: 065
     Dates: start: 20240814
  7. LATANOPROST [Concomitant]
     Active Substance: LATANOPROST
     Indication: Ill-defined disorder
     Route: 065
     Dates: start: 20240814
  8. LORAZEPAM [Concomitant]
     Active Substance: LORAZEPAM
     Indication: Ill-defined disorder
     Route: 065
     Dates: start: 20240814
  9. MOMETASONE [Concomitant]
     Active Substance: MOMETASONE
     Indication: Ill-defined disorder
     Route: 065
     Dates: start: 20240814
  10. HYDRAMED [Concomitant]
     Indication: Ill-defined disorder
     Route: 065
     Dates: start: 20250203
  11. HYDRAMED NIGHT [Concomitant]
     Indication: Ill-defined disorder
     Route: 065
     Dates: start: 20250203

REACTIONS (3)
  - Dizziness [Recovered/Resolved]
  - Headache [Recovered/Resolved]
  - Myalgia [Recovered/Resolved]
